FAERS Safety Report 7267026-4 (Version None)
Quarter: 2011Q1

REPORT INFORMATION
  Report Type: 
  Country: None (occurrence: None)
  Receive Date: 20110201
  Receipt Date: 20110120
  Transmission Date: 20110831
  Serious: Yes (Life-Threatening, Hospitalization, Other)
  Sender: FDA-Public Use
  Company Number: US-BAYER-2011-007840

PATIENT
  Sex: Male

DRUGS (9)
  1. CLONAZEPAM [Concomitant]
     Dosage: 1 MG, UNK
  2. TRAZODONE HCL [Concomitant]
     Dosage: 100 MG, HS
  3. TEMAZEPAM [Concomitant]
     Dosage: 3 MG, HS
  4. ATENOLOL [Concomitant]
  5. ZANTAC [Concomitant]
     Dosage: 150 MG/D
  6. AVELOX [Suspect]
     Indication: PNEUMONIA PRIMARY ATYPICAL
     Dosage: 400 MG, ONCE
     Dates: start: 20110107, end: 20110107
  7. PEPCID [Concomitant]
     Dosage: 20 MG, BID
  8. LORTAB [Concomitant]
     Dosage: 1-2 TABLETS Q4H, PRN
     Route: 048
  9. PRISTIQ [Concomitant]
     Dosage: DAILY DOSE 100 MG

REACTIONS (10)
  - HYPOTENSION [None]
  - RASH ERYTHEMATOUS [None]
  - HYPERHIDROSIS [None]
  - URINARY INCONTINENCE [None]
  - DELIRIUM [None]
  - DIZZINESS [None]
  - SYNCOPE [None]
  - APHASIA [None]
  - LOSS OF CONSCIOUSNESS [None]
  - ANAPHYLACTIC REACTION [None]
